FAERS Safety Report 5281932-1 (Version None)
Quarter: 2007Q1

REPORT INFORMATION
  Report Type: 
  Country: None (occurrence: None)
  Receive Date: 20070326
  Receipt Date: 20070315
  Transmission Date: 20070707
  Serious: Yes (Other)
  Sender: FDA-Public Use
  Company Number: GXKR2007GB02623

PATIENT
  Age: 65 Year
  Sex: Female

DRUGS (3)
  1. ASPIRIN [Suspect]
     Indication: TRANSIENT ISCHAEMIC ATTACK
     Dosage: 75 MG, QD
     Dates: start: 20040219
  2. ETANERCEPT (ETANERCEPT) [Concomitant]
  3. MELOXICAM [Concomitant]

REACTIONS (5)
  - CANDIDIASIS [None]
  - MYELOID MATURATION ARREST [None]
  - NEUTROPHIL COUNT DECREASED [None]
  - PLATELET MATURATION ARREST [None]
  - WHITE BLOOD CELL COUNT DECREASED [None]
